FAERS Safety Report 9459978 (Version 1)
Quarter: 2013Q3

REPORT INFORMATION
  Report Type: Spontaneous
  Country: US (occurrence: US)
  Receive Date: 20130815
  Receipt Date: 20130815
  Transmission Date: 20140515
  Serious: Yes (Death)
  Sender: FDA-Public Use
  Company Number: US-INCYTE CORPORATION-2013IN001805

PATIENT
  Sex: Male

DRUGS (1)
  1. JAKAFI [Suspect]
     Indication: ILL-DEFINED DISORDER
     Dosage: 20 MG/ 10 MG, BID
     Route: 048
     Dates: start: 20120114

REACTIONS (1)
  - Death [Fatal]
